FAERS Safety Report 14995941 (Version 1)
Quarter: 2018Q2

REPORT INFORMATION
  Report Type: Spontaneous
  Country: US (occurrence: US)
  Receive Date: 20180611
  Receipt Date: 20180611
  Transmission Date: 20180711
  Serious: Yes (Disabling, Other)
  Sender: FDA-Public Use
  Company Number: US-LINDE-US-LHC-2018134

PATIENT
  Age: 57 Year
  Sex: Male

DRUGS (1)
  1. OXYGEN (GENERIC) [Suspect]
     Active Substance: OXYGEN
     Indication: DEAFNESS NEUROSENSORY

REACTIONS (1)
  - Myopia [Not Recovered/Not Resolved]
